FAERS Safety Report 11057112 (Version 1)
Quarter: 2015Q2

REPORT INFORMATION
  Report Type: Spontaneous
  Country: CN (occurrence: CN)
  Receive Date: 20150422
  Receipt Date: 20150422
  Transmission Date: 20150821
  Serious: Yes (Other)
  Sender: FDA-Public Use
  Company Number: CN-BAYER-2015-136168

PATIENT
  Age: 82 Year
  Sex: Male
  Weight: 65 kg

DRUGS (1)
  1. BAYASPIRIN [Suspect]
     Active Substance: ASPIRIN
     Indication: POLYCYTHAEMIA VERA
     Dosage: 100 MG, QD
     Route: 048
     Dates: start: 20141008, end: 20141008

REACTIONS (1)
  - Hypotension [Recovered/Resolved]

NARRATIVE: CASE EVENT DATE: 20141008
